FAERS Safety Report 5000091-3 (Version None)
Quarter: 2006Q2

REPORT INFORMATION
  Report Type: 
  Country: None (occurrence: None)
  Receive Date: 20060509
  Receipt Date: 20060421
  Transmission Date: 20061013
  Serious: Yes (Hospitalization)
  Sender: FDA-Public Use
  Company Number: NO200604003917

PATIENT
  Age: 15 Year
  Sex: Male

DRUGS (4)
  1. STRATTERA [Suspect]
     Indication: ATTENTION DEFICIT/HYPERACTIVITY DISORDER
     Dosage: 1.2 MG/KG, DAILY (1/D), ORAL
     Route: 048
     Dates: start: 20060112, end: 20060218
  2. STRATTERA [Suspect]
     Indication: PSYCHOMOTOR HYPERACTIVITY
     Dosage: 1.2 MG/KG, DAILY (1/D), ORAL
     Route: 048
     Dates: start: 20060112, end: 20060218
  3. RITALIN [Concomitant]
  4. ALCOHOL (ETHANOL) [Concomitant]

REACTIONS (4)
  - ALCOHOL POISONING [None]
  - DRUG INTERACTION [None]
  - DRUG TOXICITY [None]
  - RESPIRATORY FAILURE [None]
